FAERS Safety Report 19563935 (Version 1)
Quarter: 2021Q3

REPORT INFORMATION
  Report Type: Spontaneous
  Country: DE (occurrence: DE)
  Receive Date: 20210715
  Receipt Date: 20210715
  Transmission Date: 20211014
  Serious: Yes (Hospitalization)
  Sender: FDA-Public Use
  Company Number: DE-BAUSCH-BL-2021-024601

PATIENT
  Age: 22 Year
  Sex: Female
  Weight: 50 kg

DRUGS (1)
  1. MOVIPREP [Suspect]
     Active Substance: ASCORBIC ACID\POLYETHYLENE GLYCOL 3350\POTASSIUM CHLORIDE\SODIUM ASCORBATE\SODIUM CHLORIDE\SODIUM SULFATE
     Indication: BOWEL PREPARATION
     Route: 048
     Dates: start: 20210414, end: 20210414

REACTIONS (8)
  - Asthenia [Unknown]
  - Feeling cold [Unknown]
  - Retching [Recovered/Resolved]
  - Vomiting [Recovered/Resolved]
  - Headache [Recovered/Resolved]
  - Tremor [Unknown]
  - Nausea [Recovered/Resolved]
  - Dry mouth [Unknown]

NARRATIVE: CASE EVENT DATE: 202104
